FAERS Safety Report 6864061-2 (Version None)
Quarter: 2010Q3

REPORT INFORMATION
  Report Type: 
  Country: None (occurrence: None)
  Receive Date: 20100720
  Receipt Date: 20100707
  Transmission Date: 20110219
  Serious: Yes (Disabling, Other)
  Sender: FDA-Public Use
  Company Number: ACO_01353_2010

PATIENT
  Age: 57 Year
  Sex: Female

DRUGS (1)
  1. AMPYRA [Suspect]
     Indication: GAIT DISTURBANCE
     Dosage: 10 MG BID ORAL
     Route: 048
     Dates: start: 20100616

REACTIONS (7)
  - ASTHENIA [None]
  - BALANCE DISORDER [None]
  - BEDRIDDEN [None]
  - DEATH OF PET [None]
  - EMOTIONAL DISTRESS [None]
  - FALL [None]
  - URINARY TRACT INFECTION [None]
